FAERS Safety Report 7997757-X (Version None)
Quarter: 2011Q4

REPORT INFORMATION
  Report Type: 
  Country: None (occurrence: None)
  Receive Date: 20111221
  Receipt Date: 20111219
  Transmission Date: 20120403
  Serious: Yes (Death, Other)
  Sender: FDA-Public Use
  Company Number: US-BRISTOL-MYERS SQUIBB COMPANY-15163116

PATIENT
  Age: 63 Year
  Sex: Male

DRUGS (5)
  1. BACTRIM DS [Concomitant]
     Dosage: ON MONDAY,WEDNESDAY AND FRIDAY
  2. VALTREX [Concomitant]
  3. IPILIMUMAB [Suspect]
     Indication: MALIGNANT MELANOMA
     Dosage: NO OF COURSES: 3
     Route: 042
     Dates: start: 20100520, end: 20100722
  4. PRAVASTATIN SODIUM [Concomitant]
  5. DEXAMETHASONE [Concomitant]

REACTIONS (3)
  - CENTRAL NERVOUS SYSTEM NECROSIS [None]
  - NEOPLASM MALIGNANT [None]
  - BRAIN OEDEMA [None]
